FAERS Safety Report 18039663 (Version 2)
Quarter: 2020Q3

REPORT INFORMATION
  Report Type: Spontaneous
  Country: CA (occurrence: CA)
  Receive Date: 20200717
  Receipt Date: 20200728
  Transmission Date: 20201103
  Serious: Yes (Hospitalization, Other)
  Sender: FDA-Public Use
  Company Number: US-ALEXION-A202010125

PATIENT
  Sex: Female

DRUGS (2)
  1. SOLIRIS [Suspect]
     Active Substance: ECULIZUMAB
     Indication: PRODUCT USED FOR UNKNOWN INDICATION
     Dosage: UNK
     Route: 065
  2. SOLIRIS [Suspect]
     Active Substance: ECULIZUMAB
     Dosage: UNK, SINGLE
     Route: 065

REACTIONS (7)
  - Somnolence [Unknown]
  - Platelet count abnormal [Unknown]
  - Decreased appetite [Unknown]
  - Condition aggravated [Unknown]
  - Pallor [Unknown]
  - Renal injury [Unknown]
  - Haemoglobin abnormal [Unknown]
